FAERS Safety Report 16522070 (Version 1)
Quarter: 2019Q3

REPORT INFORMATION
  Report Type: Spontaneous
  Country: ES (occurrence: ES)
  Receive Date: 20190703
  Receipt Date: 20190703
  Transmission Date: 20191004
  Serious: Yes (Congenital Anomaly, Other)
  Sender: FDA-Public Use
  Company Number: ES-SUN PHARMACEUTICAL INDUSTRIES LTD-2018R1-211920

PATIENT
  Sex: Male

DRUGS (3)
  1. PREDNISONE. [Suspect]
     Active Substance: PREDNISONE
     Indication: IMMUNOSUPPRESSANT DRUG THERAPY
     Dosage: 5 MILLIGRAM, DAILY
     Route: 065
  2. BETAMETHASONE. [Suspect]
     Active Substance: BETAMETHASONE
     Indication: MATERNAL THERAPY TO ENHANCE FOETAL LUNG MATURITY
     Dosage: 12 MILLIGRAM, DAILY (TWO DOSES)
     Route: 065
  3. TACROLIMUS. [Suspect]
     Active Substance: TACROLIMUS
     Indication: IMMUNOSUPPRESSANT DRUG THERAPY
     Dosage: 5.5 MILLIGRAM, DAILY
     Route: 065

REACTIONS (7)
  - Premature baby [Unknown]
  - Hypertrophic cardiomyopathy [Recovered/Resolved]
  - Low birth weight baby [Unknown]
  - Maternal therapy to enhance foetal lung maturity [Unknown]
  - Foetal growth restriction [Unknown]
  - Left ventricle outflow tract obstruction [Recovered/Resolved]
  - Foetal exposure during pregnancy [Unknown]
